FAERS Safety Report 25535657 (Version 1)
Quarter: 2025Q3

REPORT INFORMATION
  Report Type: Spontaneous
  Country: US (occurrence: None)
  Receive Date: 20250709
  Receipt Date: 20250709
  Transmission Date: 20251020
  Serious: Yes (Hospitalization)
  Sender: FDA-CTU
  Company Number: None

PATIENT
  Age: 48 Year
  Sex: Female
  Weight: 77.3 kg

DRUGS (12)
  1. ZEPBOUND [Suspect]
     Active Substance: TIRZEPATIDE
     Indication: Obesity
     Route: 030
     Dates: start: 20250525, end: 20250706
  2. UNITHROID [Concomitant]
     Active Substance: LEVOTHYROXINE SODIUM
  3. HYDROCHLOROTHIAZIDE\LOSARTAN [Concomitant]
     Active Substance: HYDROCHLOROTHIAZIDE\LOSARTAN
  4. ESCITALOPRAM [Concomitant]
     Active Substance: ESCITALOPRAM OXALATE
  5. ROSUVASTATIN [Concomitant]
     Active Substance: ROSUVASTATIN
  6. FENOFIBRATE [Concomitant]
     Active Substance: FENOFIBRATE
  7. ICOSAPENT [Concomitant]
     Active Substance: ICOSAPENT
  8. ETHYL [Concomitant]
  9. PANTOPRAZOLE [Concomitant]
     Active Substance: PANTOPRAZOLE
  10. FAMOTIDINE [Concomitant]
     Active Substance: FAMOTIDINE
  11. VITAMIN D3 [Concomitant]
     Active Substance: CHOLECALCIFEROL
  12. IBUPROFEN [Concomitant]
     Active Substance: IBUPROFEN

REACTIONS (6)
  - Diarrhoea [None]
  - Vomiting [None]
  - Nausea [None]
  - Hepatic enzyme increased [None]
  - Blood urine present [None]
  - Blood potassium decreased [None]

NARRATIVE: CASE EVENT DATE: 20250708
